FAERS Safety Report 23927698 (Version 7)
Quarter: 2025Q3

REPORT INFORMATION
  Report Type: Spontaneous
  Country: US (occurrence: US)
  Receive Date: 20240531
  Receipt Date: 20250715
  Transmission Date: 20251021
  Serious: Yes (Other)
  Sender: NOVEN
  Company Number: US-NOVEN PHARMACEUTICALS, INC.-2024-NOV-US000617

PATIENT
  Age: 16 Year
  Sex: Female

DRUGS (5)
  1. DEXTROAMPHETAMINE [Suspect]
     Active Substance: DEXTROAMPHETAMINE
     Indication: Narcolepsy
     Route: 065
  2. METHYLPHENIDATE [Suspect]
     Active Substance: METHYLPHENIDATE
     Indication: Narcolepsy
     Route: 065
  3. SODIUM OXYBATE [Suspect]
     Active Substance: SODIUM OXYBATE
     Indication: Narcolepsy
     Route: 065
  4. PITOLISANT [Suspect]
     Active Substance: PITOLISANT
     Indication: Narcolepsy
     Dosage: 8.9 MG, DAILY (LOW DOSE)
     Route: 065
  5. PITOLISANT [Suspect]
     Active Substance: PITOLISANT
     Route: 065

REACTIONS (5)
  - Suicidal ideation [Recovered/Resolved]
  - Depression [Recovered/Resolved]
  - Mania [Recovered/Resolved]
  - Decreased appetite [Recovered/Resolved]
  - Palpitations [Recovered/Resolved]
